FAERS Safety Report 4386817-0 (Version None)
Quarter: 2004Q2

REPORT INFORMATION
  Report Type: 
  Country: None (occurrence: None)
  Receive Date: 20040628
  Receipt Date: 20040628
  Transmission Date: 20050107
  Serious: No
  Sender: FDA-Public Use
  Company Number: None

PATIENT
  Age: 24 Year
  Sex: Female
  Weight: 88.4514 kg

DRUGS (1)
  1. DEPO-PROVERA [Suspect]
     Indication: CONTRACEPTION
     Dosage: 1 EVERY 3 MO
     Dates: start: 20030623, end: 20040323

REACTIONS (5)
  - CERVICAL DYSPLASIA [None]
  - DEPRESSION [None]
  - FATIGUE [None]
  - LOSS OF CONSCIOUSNESS [None]
  - WEIGHT INCREASED [None]
